FAERS Safety Report 10992126 (Version 1)
Quarter: 2015Q2

REPORT INFORMATION
  Report Type: Spontaneous
  Country: CZ (occurrence: CZ)
  Receive Date: 20150406
  Receipt Date: 20150406
  Transmission Date: 20150821
  Serious: Yes (Hospitalization, Other)
  Sender: FDA-Public Use
  Company Number: CZ-ABBVIE-15P-217-1371857-00

PATIENT
  Sex: Male

DRUGS (6)
  1. PRESTARIUM [Concomitant]
     Active Substance: PERINDOPRIL
     Indication: PRODUCT USED FOR UNKNOWN INDICATION
  2. PROSTAMOL UNO [Concomitant]
     Indication: PRODUCT USED FOR UNKNOWN INDICATION
  3. PROTHAZIN [Concomitant]
     Indication: PRODUCT USED FOR UNKNOWN INDICATION
  4. LOSEPRAZOL [Concomitant]
     Active Substance: OMEPRAZOLE
     Indication: PRODUCT USED FOR UNKNOWN INDICATION
  5. ZOLOFT [Concomitant]
     Active Substance: SERTRALINE HYDROCHLORIDE
     Indication: PRODUCT USED FOR UNKNOWN INDICATION
  6. DEPAKINE CHRONO [Suspect]
     Active Substance: VALPROATE SODIUM
     Indication: EPILEPSY
     Dosage: EXTENDED RELEASE TABLET
     Route: 048
     Dates: start: 20120101, end: 20150316

REACTIONS (3)
  - Confusional state [Recovered/Resolved]
  - Tremor [Recovered/Resolved]
  - Speech disorder [Recovered/Resolved]

NARRATIVE: CASE EVENT DATE: 20150308
